FAERS Safety Report 5611431-6 (Version None)
Quarter: 2008Q1

REPORT INFORMATION
  Report Type: 
  Country: None (occurrence: None)
  Receive Date: 20080201
  Receipt Date: 20080122
  Transmission Date: 20080703
  Serious: Yes (Hospitalization)
  Sender: FDA-Public Use
  Company Number: US-ELI_LILLY_AND_COMPANY-US200712000746

PATIENT
  Sex: Male

DRUGS (3)
  1. HUMULIN N [Suspect]
     Dosage: UNK, UNK
  2. HUMULIN R [Suspect]
  3. LANTUS [Concomitant]
     Dates: start: 20070101

REACTIONS (3)
  - BLOOD GLUCOSE DECREASED [None]
  - FALL [None]
  - FEMUR FRACTURE [None]
